FAERS Safety Report 7228357-7 (Version None)
Quarter: 2011Q1

REPORT INFORMATION
  Report Type: 
  Country: None (occurrence: None)
  Receive Date: 20110114
  Receipt Date: 20110105
  Transmission Date: 20110831
  Serious: Yes (Other)
  Sender: FDA-Public Use
  Company Number: BR-PFIZER INC-2011002324

PATIENT
  Age: 25 Year
  Sex: Female
  Weight: 39 kg

DRUGS (1)
  1. DOSTINEX [Suspect]
     Indication: LACTATION INHIBITION THERAPY
     Dosage: 1 MG (2 TABLETS OF 0.5 MG), SINGLE DOSE, AT NIGHT
     Route: 048
     Dates: start: 20110104, end: 20110104

REACTIONS (7)
  - DRUG EXPOSURE VIA BREAST MILK [None]
  - BREAST DISORDER [None]
  - BREAST PAIN [None]
  - BREAST MASS [None]
  - LACTATION DISORDER [None]
  - PYREXIA [None]
  - HEADACHE [None]
